FAERS Safety Report 17819345 (Version 1)
Quarter: 2020Q2

REPORT INFORMATION
  Report Type: Spontaneous
  Country: FR (occurrence: FR)
  Receive Date: 20200523
  Receipt Date: 20200523
  Transmission Date: 20200714
  Serious: Yes (Other)
  Sender: FDA-Public Use
  Company Number: NVSC2020FR055093

PATIENT
  Age: 28 Year
  Sex: Female

DRUGS (7)
  1. NICARDIPINE [Suspect]
     Active Substance: NICARDIPINE
     Indication: PRE-ECLAMPSIA
  2. NICARDIPINE [Suspect]
     Active Substance: NICARDIPINE
     Indication: BLOOD PRESSURE MEASUREMENT
  3. BETAMETHASONE. [Suspect]
     Active Substance: BETAMETHASONE
     Indication: FOETAL GROWTH RESTRICTION
  4. NICARDIPINE [Suspect]
     Active Substance: NICARDIPINE
     Indication: RESPIRATORY THERAPY
     Dosage: UNK
     Route: 065
  5. LABETALOL [Suspect]
     Active Substance: LABETALOL\LABETALOL HYDROCHLORIDE
     Indication: BLOOD PRESSURE MEASUREMENT
  6. BETAMETHASONE. [Suspect]
     Active Substance: BETAMETHASONE
     Indication: RESPIRATORY THERAPY
     Dosage: 12 MILLIGRAM, DAILY, DIVIDED DOSE
     Route: 065
  7. LABETALOL [Suspect]
     Active Substance: LABETALOL\LABETALOL HYDROCHLORIDE
     Indication: RESPIRATORY THERAPY
     Dosage: UNK
     Route: 065

REACTIONS (8)
  - Pulmonary oedema [Not Recovered/Not Resolved]
  - Premature labour [Unknown]
  - Premature rupture of membranes [Unknown]
  - Drug ineffective [Unknown]
  - Foetal distress syndrome [Unknown]
  - Hypertension [Unknown]
  - Exposure during pregnancy [Unknown]
  - Premature delivery [Unknown]
